APPROVED DRUG PRODUCT: MEPERIDINE HYDROCHLORIDE
Active Ingredient: MEPERIDINE HYDROCHLORIDE
Strength: 100MG
Dosage Form/Route: TABLET;ORAL
Application: A040331 | Product #002
Applicant: EPIC PHARMA LLC
Approved: May 28, 1999 | RLD: No | RS: No | Type: RX